FAERS Safety Report 19017965 (Version 1)
Quarter: 2021Q1

REPORT INFORMATION
  Report Type: Spontaneous
  Country: CA (occurrence: CA)
  Receive Date: 20210316
  Receipt Date: 20210316
  Transmission Date: 20210420
  Serious: Yes (Other)
  Sender: FDA-Public Use
  Company Number: CA-TEVA-2021-CA-1889877

PATIENT
  Age: 15 Year
  Sex: Male
  Weight: 127 kg

DRUGS (27)
  1. CLONIDINE. [Suspect]
     Active Substance: CLONIDINE
     Route: 065
  2. CLONIDINE. [Suspect]
     Active Substance: CLONIDINE
     Dosage: .2 MILLIGRAM DAILY;
     Route: 065
  3. QUETIAPINE FUMARATE. [Suspect]
     Active Substance: QUETIAPINE FUMARATE
     Indication: BEHAVIOUR DISORDER
     Route: 048
  4. QUETIAPINE FUMARATE. [Suspect]
     Active Substance: QUETIAPINE FUMARATE
     Indication: AUTISM SPECTRUM DISORDER
     Route: 048
  5. QUETIAPINE FUMARATE. [Suspect]
     Active Substance: QUETIAPINE FUMARATE
     Dosage: 50 MILLIGRAM DAILY;
     Route: 048
  6. QUETIAPINE FUMARATE. [Suspect]
     Active Substance: QUETIAPINE FUMARATE
     Dosage: 500 MILLIGRAM DAILY;
     Route: 048
  7. SERTRALINE HYDROCHLORIDE. [Suspect]
     Active Substance: SERTRALINE HYDROCHLORIDE
     Dosage: 100 MILLIGRAM DAILY;
     Route: 065
  8. CLONIDINE. [Suspect]
     Active Substance: CLONIDINE
     Dosage: .2 MILLIGRAM DAILY;
     Route: 065
  9. OLANZAPINE. [Suspect]
     Active Substance: OLANZAPINE
     Indication: BEHAVIOUR DISORDER
     Dosage: 20 MILLIGRAM DAILY;
     Route: 065
  10. SERTRALINE HYDROCHLORIDE. [Suspect]
     Active Substance: SERTRALINE HYDROCHLORIDE
     Indication: AUTISM SPECTRUM DISORDER
     Dosage: 100 MILLIGRAM DAILY;
     Route: 065
  11. ZIPRASIDONE. [Concomitant]
     Active Substance: ZIPRASIDONE
     Indication: AUTISM SPECTRUM DISORDER
     Dosage: 80 MILLIGRAM DAILY;
     Route: 065
  12. CLONIDINE. [Suspect]
     Active Substance: CLONIDINE
     Indication: BEHAVIOUR DISORDER
     Dosage: .1 MILLIGRAM DAILY;
     Route: 065
  13. QUETIAPINE FUMARATE. [Suspect]
     Active Substance: QUETIAPINE FUMARATE
     Dosage: 50 MILLIGRAM DAILY;
     Route: 048
  14. ZIPRASIDONE. [Concomitant]
     Active Substance: ZIPRASIDONE
     Indication: INTELLECTUAL DISABILITY
     Dosage: 80 MILLIGRAM DAILY;
     Route: 065
  15. QUETIAPINE FUMARATE. [Suspect]
     Active Substance: QUETIAPINE FUMARATE
     Dosage: 50 MILLIGRAM DAILY;
     Route: 048
  16. OLANZAPINE. [Suspect]
     Active Substance: OLANZAPINE
     Indication: INTELLECTUAL DISABILITY
     Dosage: 20 MILLIGRAM DAILY;
     Route: 065
  17. OLANZAPINE. [Suspect]
     Active Substance: OLANZAPINE
     Route: 065
  18. SERTRALINE HYDROCHLORIDE. [Suspect]
     Active Substance: SERTRALINE HYDROCHLORIDE
     Dosage: 100 MILLIGRAM DAILY;
     Route: 065
  19. OLANZAPINE. [Suspect]
     Active Substance: OLANZAPINE
     Route: 065
  20. QUETIAPINE FUMARATE. [Suspect]
     Active Substance: QUETIAPINE FUMARATE
     Indication: INTELLECTUAL DISABILITY
     Route: 048
  21. QUETIAPINE FUMARATE. [Suspect]
     Active Substance: QUETIAPINE FUMARATE
     Dosage: 500 MILLIGRAM DAILY;
     Route: 048
  22. CLONIDINE. [Suspect]
     Active Substance: CLONIDINE
     Indication: INTELLECTUAL DISABILITY
     Route: 065
  23. CLONIDINE. [Suspect]
     Active Substance: CLONIDINE
     Indication: AUTISM SPECTRUM DISORDER
     Route: 065
  24. QUETIAPINE FUMARATE. [Suspect]
     Active Substance: QUETIAPINE FUMARATE
     Dosage: 500 MILLIGRAM DAILY;
     Route: 048
  25. SERTRALINE HYDROCHLORIDE. [Suspect]
     Active Substance: SERTRALINE HYDROCHLORIDE
     Indication: INTELLECTUAL DISABILITY
     Route: 065
  26. SERTRALINE HYDROCHLORIDE. [Suspect]
     Active Substance: SERTRALINE HYDROCHLORIDE
     Indication: BEHAVIOUR DISORDER
     Route: 065
  27. LAMOTRIGINE. [Suspect]
     Active Substance: LAMOTRIGINE
     Indication: BEHAVIOUR DISORDER
     Dosage: 50 MILLIGRAM DAILY;
     Route: 065

REACTIONS (6)
  - Aggression [Recovered/Resolved]
  - Product prescribing issue [Recovered/Resolved]
  - Product use issue [Recovered/Resolved]
  - Overweight [Recovered/Resolved]
  - Blood prolactin increased [Recovered/Resolved]
  - Obesity [Recovered/Resolved]
